FAERS Safety Report 4321904-4 (Version None)
Quarter: 2004Q1

REPORT INFORMATION
  Report Type: 
  Country: None (occurrence: None)
  Receive Date: 20040317
  Receipt Date: 20040301
  Transmission Date: 20041129
  Serious: Yes (Death)
  Sender: FDA-Public Use
  Company Number: 234471

PATIENT
  Age: 33 Year
  Sex: Female
  Weight: 55 kg

DRUGS (17)
  1. NIASTASE (EPTACOG ALFA (ACTIVATED) ) [Suspect]
     Indication: HELLP SYNDROME
     Dosage: SEE IMAGE
     Route: 042
     Dates: start: 20031202, end: 20031202
  2. NIASTASE (EPTACOG ALFA (ACTIVATED) ) [Suspect]
     Indication: HELLP SYNDROME
     Dosage: SEE IMAGE
     Route: 042
     Dates: start: 20031202, end: 20031202
  3. NIASTASE (EPTACOG ALFA (ACTIVATED) ) [Suspect]
     Indication: HELLP SYNDROME
     Dosage: SEE IMAGE
     Route: 042
     Dates: start: 20031202, end: 20031202
  4. NIASTASE (EPTACOG ALFA (ACTIVATED) ) [Suspect]
     Indication: HELLP SYNDROME
     Dosage: SEE IMAGE
     Route: 042
     Dates: start: 20031202, end: 20031202
  5. NIASTASE (EPTACOG ALFA (ACTIVATED) ) [Suspect]
     Indication: HELLP SYNDROME
     Dosage: SEE IMAGE
     Route: 042
     Dates: start: 20031202, end: 20031202
  6. NIASTASE(EPTACOG ALFA ACTIVATED) ) [Suspect]
  7. NIASTASE(EPTACOG ALFA ACTIVATED) ) [Suspect]
  8. NIASTASE(EPTACOG ALFA ACTIVATED) ) [Suspect]
  9. NIASTASE(EPTACOG ALFA ACTIVATED) ) [Suspect]
  10. NIASTASE(EPTACOG ALFA ACTIVATED) ) [Suspect]
  11. TRANEXAMIC ACID [Concomitant]
  12. FRAGMIN [Concomitant]
  13. RED BLOOD CELLS (RBC) [Concomitant]
  14. PLATELETS [Concomitant]
  15. PLASMA [Concomitant]
  16. HEMABATE (CARBOPROST TROMETAMOL) [Concomitant]
  17. SYNTOCINON (OXYTODIN) [Concomitant]

REACTIONS (8)
  - ACUTE MYOCARDIAL INFARCTION [None]
  - CARDIAC ARREST [None]
  - CORONARY ARTERY THROMBOSIS [None]
  - DYSPNOEA [None]
  - MYOCARDIAL RUPTURE [None]
  - OEDEMA PERIPHERAL [None]
  - SEPSIS [None]
  - TRANSFUSION REACTION [None]
